FAERS Safety Report 5742647-6 (Version None)
Quarter: 2008Q2

REPORT INFORMATION
  Report Type: 
  Country: None (occurrence: None)
  Receive Date: 20080519
  Receipt Date: 20080508
  Transmission Date: 20081010
  Serious: Yes (Life-Threatening, Hospitalization)
  Sender: FDA-Public Use
  Company Number: CH-BAYER-200814714GPV

PATIENT
  Age: 50 Year
  Sex: Male

DRUGS (1)
  1. ULTRAVIST 150 [Suspect]
     Indication: COMPUTERISED TOMOGRAM
     Route: 042

REACTIONS (4)
  - ANAPHYLACTOID SHOCK [None]
  - BALANCE DISORDER [None]
  - DYSPNOEA [None]
  - LOCALISED OEDEMA [None]
